FAERS Safety Report 10776049 (Version 1)
Quarter: 2015Q1

REPORT INFORMATION
  Report Type: Spontaneous
  Country: US (occurrence: None)
  Receive Date: 20150205
  Receipt Date: 20150205
  Transmission Date: 20150721
  Serious: No
  Sender: FDA-Public Use
  Company Number: None

PATIENT

DRUGS (2)
  1. PRAVASTATIN SODIUM. [Suspect]
     Active Substance: PRAVASTATIN SODIUM
  2. PAXIL (PAXIL) [Suspect]
     Active Substance: PAROXETINE HYDROCHLORIDE

REACTIONS (3)
  - Drug dispensing error [None]
  - Wrong drug administered [None]
  - Product packaging confusion [None]
